FAERS Safety Report 16853099 (Version 1)
Quarter: 2019Q3

REPORT INFORMATION
  Report Type: Spontaneous
  Country: US (occurrence: US)
  Receive Date: 20190925
  Receipt Date: 20190925
  Transmission Date: 20191005
  Serious: No
  Sender: FDA-Public Use
  Company Number: US-JNJFOC-20190931023

PATIENT
  Age: 42 Year
  Sex: Female
  Weight: 113.5 kg

DRUGS (1)
  1. STELARA [Suspect]
     Active Substance: USTEKINUMAB
     Indication: PSORIASIS
     Route: 058

REACTIONS (5)
  - Product dose omission [Unknown]
  - Psoriasis [Not Recovered/Not Resolved]
  - Off label use [Unknown]
  - Product storage error [Unknown]
  - Incorrect dose administered [Unknown]

NARRATIVE: CASE EVENT DATE: 201909
